FAERS Safety Report 4358565-4 (Version None)
Quarter: 2004Q2

REPORT INFORMATION
  Report Type: 
  Country: None (occurrence: None)
  Receive Date: 20040512
  Receipt Date: 20040427
  Transmission Date: 20050107
  Serious: Yes (Death, Hospitalization)
  Sender: FDA-Public Use
  Company Number: ZANA001156

PATIENT
  Age: 62 Year
  Sex: Female

DRUGS (3)
  1. TIZANIDINE HCL [Suspect]
     Indication: DRUG USE FOR UNKNOWN INDICATION
     Dosage: ORAL
     Route: 048
  2. AMITRIPTYLINE HCL [Concomitant]
  3. SEROXAT ^NOVO NORDISK^ (PAROXETINE HYDROCHLORIDE) [Concomitant]

REACTIONS (3)
  - DRUG WITHDRAWAL SYNDROME [None]
  - HEPATITIS A [None]
  - PANCREATITIS ACUTE [None]
